FAERS Safety Report 12671165 (Version 1)
Quarter: 2016Q3

REPORT INFORMATION
  Report Type: Report from Study
  Country: US (occurrence: US)
  Receive Date: 20160822
  Receipt Date: 20160822
  Transmission Date: 20161109
  Serious: No
  Sender: FDA-Public Use
  Company Number: PHEH2016US020410

PATIENT
  Age: 72 Year
  Sex: Female

DRUGS (1)
  1. ENTRESTO [Suspect]
     Active Substance: SACUBITRIL\VALSARTAN
     Indication: PRODUCT USED FOR UNKNOWN INDICATION
     Dosage: 50 MG, ONE TABLET LAST NIGHT AND ONE TABLET THIS MORNING
     Route: 048
     Dates: start: 20160809

REACTIONS (3)
  - Malaise [Unknown]
  - Insomnia [Unknown]
  - Hypotension [Unknown]

NARRATIVE: CASE EVENT DATE: 20160809
